FAERS Safety Report 5183163-2 (Version None)
Quarter: 2006Q4

REPORT INFORMATION
  Report Type: 
  Country: None (occurrence: None)
  Receive Date: 20061220
  Receipt Date: 20051227
  Transmission Date: 20070319
  Serious: No
  Sender: FDA-Public Use
  Company Number: US-GLAXOSMITHKLINE-A0587012A

PATIENT
  Age: 47 Year
  Sex: Male

DRUGS (2)
  1. NICODERM CQ [Suspect]
     Dates: end: 20051226
  2. NICODERM CQ [Suspect]

REACTIONS (3)
  - ABNORMAL DREAMS [None]
  - APPLICATION SITE ERYTHEMA [None]
  - DYSPEPSIA [None]
